FAERS Safety Report 5088837-X (Version None)
Quarter: 2006Q3

REPORT INFORMATION
  Report Type: 
  Country: None (occurrence: None)
  Receive Date: 20060824
  Receipt Date: 20060824
  Transmission Date: 20061208
  Serious: Yes (Other)
  Sender: FDA-Public Use
  Company Number: None

PATIENT
  Age: 9 Year
  Sex: Female
  Weight: 38.1022 kg

DRUGS (1)
  1. LITHIUM CARBONATE [Suspect]
     Indication: BIPOLAR DISORDER
     Dosage: 2 TIMES DAILY PILL BY MOUTH
     Route: 048
     Dates: start: 19980101, end: 20060101

REACTIONS (3)
  - ABNORMAL BEHAVIOUR [None]
  - DRUG LEVEL CHANGED [None]
  - MOOD SWINGS [None]
